FAERS Safety Report 4503064-X (Version None)
Quarter: 2004Q4

REPORT INFORMATION
  Report Type: 
  Country: None (occurrence: None)
  Receive Date: 20041116
  Receipt Date: 20041116
  Transmission Date: 20050328
  Serious: Yes (Death)
  Sender: FDA-Public Use
  Company Number: None

PATIENT
  Age: 47 Year
  Sex: Male
  Weight: 121 kg

DRUGS (1)
  1. EPHEDRINE HYPOCHLORIDE 12.5 MG [Suspect]
     Indication: PRODUCTIVE COUGH
     Dosage: 2 PILLS ORAL 6 HOURS PRIOR
     Dates: start: 20040412

REACTIONS (2)
  - CARDIAC ARREST [None]
  - CHEST PAIN [None]
